FAERS Safety Report 10229343 (Version 1)
Quarter: 2014Q2

REPORT INFORMATION
  Report Type: Spontaneous
  Country: AU (occurrence: AU)
  Receive Date: 20140611
  Receipt Date: 20140611
  Transmission Date: 20141212
  Serious: Yes (Other)
  Sender: FDA-Public Use
  Company Number: AU-ROCHE-1416923

PATIENT
  Sex: Female

DRUGS (4)
  1. HERCEPTIN [Suspect]
     Indication: PRODUCT USED FOR UNKNOWN INDICATION
     Route: 065
     Dates: end: 201306
  2. TAXOTERE [Suspect]
     Indication: PRODUCT USED FOR UNKNOWN INDICATION
     Route: 065
     Dates: end: 201306
  3. XELODA [Concomitant]
     Indication: METASTATIC NEOPLASM
     Route: 065
  4. LAPATINIB [Concomitant]
     Indication: METASTATIC NEOPLASM

REACTIONS (1)
  - Metastatic neoplasm [Unknown]
